FAERS Safety Report 7354943-X (Version None)
Quarter: 2011Q1

REPORT INFORMATION
  Report Type: 
  Country: None (occurrence: None)
  Receive Date: 20110316
  Receipt Date: 20100830
  Transmission Date: 20110831
  Serious: Yes (Hospitalization, Other)
  Sender: FDA-Public Use
  Company Number: US-BAYER-201026781NA

PATIENT
  Sex: Female
  Weight: 72.562 kg

DRUGS (6)
  1. YASMIN [Suspect]
     Indication: CONTRACEPTION
     Route: 048
     Dates: start: 20040901, end: 20070815
  2. LEXAPRO [Concomitant]
     Dosage: 10 MG - 20 MG
     Route: 048
  3. PAXIL [Concomitant]
     Dosage: 40 MG, QD
     Route: 048
  4. FLUOXETINE [Concomitant]
     Indication: DEPRESSION
     Dosage: 20 MG, UNK
     Route: 048
  5. BUTALBITAL [Concomitant]
     Indication: MIGRAINE WITH AURA
     Dosage: UNK
     Route: 048
     Dates: start: 20000101
  6. TOPAMAX [Concomitant]
     Indication: MIGRAINE WITH AURA
     Dosage: 100 MG, AT BEDTIME
     Route: 048
     Dates: start: 20060101, end: 20070101

REACTIONS (6)
  - CEREBRAL VENOUS THROMBOSIS [None]
  - CEREBROVASCULAR ACCIDENT [None]
  - DEPRESSION [None]
  - ANXIETY [None]
  - CEREBRAL THROMBOSIS [None]
  - CONVULSION [None]
